FAERS Safety Report 7593123-X (Version None)
Quarter: 2011Q3

REPORT INFORMATION
  Report Type: 
  Country: None (occurrence: None)
  Receive Date: 20110706
  Receipt Date: 20100219
  Transmission Date: 20111222
  Serious: Yes (Hospitalization)
  Sender: FDA-Public Use
  Company Number: US-MYLANLABS-2010S1000127

PATIENT
  Age: 34 Year
  Sex: Female
  Weight: 102.06 kg

DRUGS (2)
  1. ZYPREXA [Suspect]
     Indication: MAJOR DEPRESSION
     Route: 048
     Dates: end: 20091101
  2. EMSAM [Suspect]
     Indication: MAJOR DEPRESSION
     Dosage: CHANGED Q24H
     Route: 062
     Dates: start: 20070101, end: 20091101

REACTIONS (2)
  - DRUG INEFFECTIVE [None]
  - DEPRESSION [None]
